FAERS Safety Report 8019276-7 (Version None)
Quarter: 2012Q1

REPORT INFORMATION
  Report Type: 
  Country: None (occurrence: None)
  Receive Date: 20120103
  Receipt Date: 20111221
  Transmission Date: 20120608
  Serious: No
  Sender: FDA-Public Use
  Company Number: US-BAYER-2011-123358

PATIENT
  Age: 16 Year
  Sex: Female

DRUGS (2)
  1. GADAVIST [Suspect]
     Indication: HEADACHE
  2. GADAVIST [Suspect]
     Indication: NUCLEAR MAGNETIC RESONANCE IMAGING BRAIN
     Dosage: 5 ML, ONCE
     Dates: start: 20111220, end: 20111220

REACTIONS (2)
  - NAUSEA [None]
  - VOMITING [None]
